FAERS Safety Report 5979663-5 (Version None)
Quarter: 2008Q4

REPORT INFORMATION
  Report Type: 
  Country: None (occurrence: None)
  Receive Date: 20081204
  Receipt Date: 20081125
  Transmission Date: 20090506
  Serious: Yes (Death)
  Sender: FDA-Public Use
  Company Number: US-WATSON-2008-07033

PATIENT
  Age: 17 Day
  Sex: Male

DRUGS (3)
  1. LORATADINE/PSEUDOEPHEDRINE SULFATE (WATSON LABORATORIES) [Suspect]
     Indication: NASOPHARYNGITIS
     Dosage: UNK
  2. BROMPHENIRAMINE MALEATE (WATSON LABORATORIES) [Suspect]
     Indication: NASOPHARYNGITIS
     Dosage: UNK
  3. DEXTROMETHORPHAN HYDROBROMIDE [Suspect]
     Indication: NASOPHARYNGITIS
     Dosage: UNK

REACTIONS (1)
  - DEATH [None]
